FAERS Safety Report 15009918 (Version 1)
Quarter: 2018Q2

REPORT INFORMATION
  Report Type: Spontaneous
  Country: US (occurrence: US)
  Receive Date: 20180614
  Receipt Date: 20180614
  Transmission Date: 20180711
  Serious: Yes (Other)
  Sender: FDA-Public Use
  Company Number: US-SUN PHARMACEUTICAL INDUSTRIES LTD-2018US-175513

PATIENT
  Age: 10 Year
  Sex: Male

DRUGS (7)
  1. METHOTREXATE. [Suspect]
     Active Substance: METHOTREXATE
     Indication: ANGIOSARCOMA
     Dosage: 20 UNK, 1/WEEK
     Route: 048
  2. DACTINOMYCIN [Concomitant]
     Active Substance: DACTINOMYCIN
     Indication: ANGIOSARCOMA
     Dosage: UNK
     Route: 065
  3. PREDNISONE. [Suspect]
     Active Substance: PREDNISONE
     Indication: THROMBOCYTOPENIA
  4. PREDNISONE. [Suspect]
     Active Substance: PREDNISONE
     Indication: PAIN IN EXTREMITY
     Dosage: 1 MG/KG, QD
     Route: 065
  5. PREDNISONE. [Suspect]
     Active Substance: PREDNISONE
     Indication: PERIPHERAL SWELLING
     Dosage: 1 MG/KG, BID
     Route: 065
  6. VINCRISTINE [Suspect]
     Active Substance: VINCRISTINE
     Indication: ANGIOSARCOMA
     Dosage: UNK, 1/WEEK
     Route: 065
  7. CYCLOPHOSPHAMIDE. [Suspect]
     Active Substance: CYCLOPHOSPHAMIDE
     Indication: ANGIOSARCOMA
     Dosage: UNK (500 MG/M2)
     Route: 065

REACTIONS (3)
  - Condition aggravated [Recovered/Resolved]
  - Toxicity to various agents [Unknown]
  - Gastrointestinal toxicity [Unknown]
